FAERS Safety Report 23015041 (Version 1)
Quarter: 2023Q4

REPORT INFORMATION
  Report Type: Spontaneous
  Country: US (occurrence: US)
  Receive Date: 20231002
  Receipt Date: 20231002
  Transmission Date: 20240109
  Serious: No
  Sender: FDA-Public Use
  Company Number: US-Nobelpharma America, LLC-NPA-2023-01894

PATIENT
  Age: 2 Year
  Sex: Male

DRUGS (1)
  1. HYFTOR [Suspect]
     Active Substance: SIROLIMUS
     Indication: Tuberous sclerosis complex
     Dosage: APPLY TO AFFECTED AREAS ONT HE FACE TWICE DAILY. MAX DAILY DOSING: 600MG (2CM)
     Route: 003
     Dates: start: 20230912

REACTIONS (3)
  - Erythema [Unknown]
  - Product dose omission issue [None]
  - Product use issue [None]

NARRATIVE: CASE EVENT DATE: 20230901
